FAERS Safety Report 23807462 (Version 1)
Quarter: 2024Q2

REPORT INFORMATION
  Report Type: Spontaneous
  Country: CA (occurrence: CA)
  Receive Date: 20240502
  Receipt Date: 20240502
  Transmission Date: 20240716
  Serious: Yes (Other)
  Sender: FDA-Public Use
  Company Number: CA-AUROBINDO-AUR-APL-2023-049472

PATIENT
  Age: 28 Year
  Sex: Male

DRUGS (11)
  1. GABAPENTIN [Suspect]
     Active Substance: GABAPENTIN
     Indication: Onychalgia
     Dosage: UNK
     Route: 065
  2. GABAPENTIN [Suspect]
     Active Substance: GABAPENTIN
     Indication: Pain in extremity
  3. GABAPENTIN [Suspect]
     Active Substance: GABAPENTIN
     Indication: Onychalgia
  4. KETAMINE [Suspect]
     Active Substance: KETAMINE
     Indication: Onychalgia
     Dosage: UNK
     Route: 061
  5. KETAMINE [Suspect]
     Active Substance: KETAMINE
     Indication: Pain in extremity
  6. KETAMINE [Suspect]
     Active Substance: KETAMINE
     Indication: Onychalgia
  7. NAPROXEN [Suspect]
     Active Substance: NAPROXEN
     Indication: Onychalgia
     Dosage: UNK
     Route: 065
  8. NAPROXEN [Suspect]
     Active Substance: NAPROXEN
     Indication: Pain in extremity
  9. NAPROXEN [Suspect]
     Active Substance: NAPROXEN
     Indication: Onychalgia
  10. TRAMETINIB [Suspect]
     Active Substance: TRAMETINIB
     Indication: Glomus tumour
     Dosage: 0.5 MILLIGRAM, ONCE A DAY
     Route: 048
  11. TRAMETINIB [Suspect]
     Active Substance: TRAMETINIB
     Dosage: 2 MILLIGRAM, ONCE A DAY
     Route: 048

REACTIONS (2)
  - Drug ineffective [Unknown]
  - Drug ineffective for unapproved indication [Unknown]
